FAERS Safety Report 14989365 (Version 1)
Quarter: 2018Q2

REPORT INFORMATION
  Report Type: Spontaneous
  Country: US (occurrence: US)
  Receive Date: 20180608
  Receipt Date: 20180608
  Transmission Date: 20180711
  Serious: No
  Sender: FDA-Public Use
  Company Number: US-BAYER-2018-104693

PATIENT
  Age: 76 Year
  Sex: Male
  Weight: 70 kg

DRUGS (3)
  1. MAGNESIUM CITRATE [MAGNESIUM CITRATE] [Concomitant]
     Dosage: UNK
  2. PHILLIPS LITTLE PHILLIPS FRESH STRAWBERRY [Suspect]
     Active Substance: MAGNESIUM HYDROXIDE
     Indication: GASTROINTESTINAL DISORDER
     Dosage: 2 ONCE DAILY
     Route: 048
     Dates: start: 2013
  3. MIRALAX [Suspect]
     Active Substance: POLYETHYLENE GLYCOL 3350
     Indication: GASTROINTESTINAL DISORDER
     Dosage: UNK
     Route: 048
     Dates: start: 201805

REACTIONS (3)
  - Vertigo [Not Recovered/Not Resolved]
  - Inappropriate schedule of drug administration [Unknown]
  - Product prescribing issue [Not Recovered/Not Resolved]

NARRATIVE: CASE EVENT DATE: 201805
